FAERS Safety Report 10464957 (Version 2)
Quarter: 2014Q4

REPORT INFORMATION
  Report Type: Spontaneous
  Country: US (occurrence: US)
  Receive Date: 20140919
  Receipt Date: 20141009
  Transmission Date: 20150528
  Serious: No
  Sender: FDA-Public Use
  Company Number: US-ELI_LILLY_AND_COMPANY-US201409004796

PATIENT
  Sex: Male

DRUGS (3)
  1. AXIRON [Suspect]
     Active Substance: TESTOSTERONE
     Dosage: 30 MG, QD
     Route: 061
     Dates: start: 20140828
  2. AXIRON [Suspect]
     Active Substance: TESTOSTERONE
     Route: 062
  3. AXIRON [Suspect]
     Active Substance: TESTOSTERONE
     Indication: HYPOGONADISM
     Dosage: 60 MG, QD
     Route: 062
     Dates: start: 201303

REACTIONS (4)
  - Blood testosterone abnormal [Recovered/Resolved]
  - Irritability [Unknown]
  - Insomnia [Unknown]
  - Epididymal cyst [Unknown]

NARRATIVE: CASE EVENT DATE: 2014
